FAERS Safety Report 23186166 (Version 1)
Quarter: 2023Q4

REPORT INFORMATION
  Report Type: Report from Study
  Country: US (occurrence: US)
  Receive Date: 20231115
  Receipt Date: 20231115
  Transmission Date: 20240109
  Serious: No
  Sender: FDA-Public Use
  Company Number: US-BIOVITRUM-2023-US-017905

PATIENT
  Age: 29 Year
  Sex: Female

DRUGS (1)
  1. KINERET [Suspect]
     Active Substance: ANAKINRA
     Indication: Pericarditis
     Dosage: 100 MG, DAILY
     Route: 058
     Dates: start: 20230706

REACTIONS (5)
  - Limb discomfort [Unknown]
  - Skin reaction [Unknown]
  - Contusion [Unknown]
  - Skin discolouration [Unknown]
  - Intentional product misuse [Not Recovered/Not Resolved]

NARRATIVE: CASE EVENT DATE: 20230706
